FAERS Safety Report 22611352 (Version 1)
Quarter: 2023Q2

REPORT INFORMATION
  Report Type: Spontaneous
  Country: RO (occurrence: RO)
  Receive Date: 20230616
  Receipt Date: 20230616
  Transmission Date: 20230721
  Serious: Yes (Death, Other)
  Sender: FDA-Public Use
  Company Number: RO-PFIZER INC-PV202300106439

PATIENT
  Age: 67 Year
  Sex: Female

DRUGS (5)
  1. PALBOCICLIB [Suspect]
     Active Substance: PALBOCICLIB
     Indication: Breast cancer
     Dosage: 125 MG, CYCLIC,ONCE DAILY FOR 21 CONSECUTIVE DAYS, FOLLOWED BY 7 DAYS WITHOUT TREATMENT
     Dates: start: 20200213, end: 20221013
  2. PALBOCICLIB [Suspect]
     Active Substance: PALBOCICLIB
     Dosage: 100 MG, CYCLIC
  3. PALBOCICLIB [Suspect]
     Active Substance: PALBOCICLIB
     Dosage: 75 MG, CYCLIC,  FOR 2.5 YEARS
  4. ANASTROZOLE [Suspect]
     Active Substance: ANASTROZOLE
     Indication: Breast cancer
     Dosage: 1 MG, DAILY, SECOND-LINE TREATMENT
     Dates: start: 20200213, end: 20221013
  5. ZOMETA [Suspect]
     Active Substance: ZOLEDRONIC ACID
     Indication: Breast cancer
     Dosage: 4 MG, TD UP TO 2 YEARS, SECOND-LINE TREATMENT
     Dates: start: 20200213, end: 20221013

REACTIONS (6)
  - Death [Fatal]
  - Leukopenia [Unknown]
  - Neutropenia [Unknown]
  - Asthenia [Unknown]
  - Chest discomfort [Unknown]
  - Neoplasm progression [Unknown]
